FAERS Safety Report 18349668 (Version 1)
Quarter: 2020Q4

REPORT INFORMATION
  Report Type: Spontaneous
  Country: US (occurrence: US)
  Receive Date: 20201006
  Receipt Date: 20201006
  Transmission Date: 20210114
  Serious: No
  Sender: FDA-Public Use
  Company Number: None

PATIENT
  Sex: Male

DRUGS (11)
  1. GLUTATHIONE [Concomitant]
     Active Substance: GLUTATHIONE
  2. IRON [Concomitant]
     Active Substance: IRON
  3. KYROUS [Concomitant]
  4. NINLARO [Suspect]
     Active Substance: IXAZOMIB CITRATE
     Indication: PLASMA CELL MYELOMA
     Dosage: ?          OTHER FREQUENCY:DAYS 1. 8. +15;?
     Route: 048
     Dates: start: 20201001
  5. ASPIRIN. [Concomitant]
     Active Substance: ASPIRIN
  6. CALCIUM [Concomitant]
     Active Substance: CALCIUM
  7. STRONTIUM [Concomitant]
     Active Substance: STRONTIUM
  8. ZOLEDRONIC [Concomitant]
     Active Substance: ZOLEDRONIC ACID
  9. DEXAMETHASONE. [Concomitant]
     Active Substance: DEXAMETHASONE
  10. TYLENOL [Concomitant]
     Active Substance: ACETAMINOPHEN
  11. OXYCODONE [Concomitant]
     Active Substance: OXYCODONE

REACTIONS (1)
  - Gastric disorder [None]
